FAERS Safety Report 11796333 (Version 8)
Quarter: 2019Q4

REPORT INFORMATION
  Report Type: Spontaneous
  Country: US (occurrence: US)
  Receive Date: 20151203
  Receipt Date: 20191220
  Transmission Date: 20200122
  Serious: Yes (Other)
  Sender: FDA-Public Use
  Company Number: US-PFIZER INC-2015407126

PATIENT
  Age: 80 Year
  Sex: Female
  Weight: 58 kg

DRUGS (18)
  1. SULFADERM [Concomitant]
     Indication: SLEEP DISORDER
     Dosage: 5 MG, UNK
     Route: 048
  2. CALCIUM [Concomitant]
     Active Substance: CALCIUM
     Indication: BONE DISORDER
     Dosage: 1200 MG, ONCE A DAY
     Route: 048
     Dates: start: 1993
  3. MAGNESIUM [Concomitant]
     Active Substance: MAGNESIUM
     Dosage: 250 MG, ONCE A DAY
     Route: 048
  4. VITAMIN B12 [Concomitant]
     Active Substance: CYANOCOBALAMIN
     Indication: VITAMIN B12 DEFICIENCY
     Dosage: 1000 MG, UNK
     Route: 060
  5. LYRICA [Suspect]
     Active Substance: PREGABALIN
     Dosage: 175 MG, DAILY(1 CAPSULE ONCE A DAY IN ADDITION TO THE 100 MG CAPSULE 90 DAY(S))
     Route: 048
  6. LYRICA [Suspect]
     Active Substance: PREGABALIN
     Indication: LUMBAR SPINAL STENOSIS
     Dosage: 300 MG, DAILY [150 MG (TWO 75 MG TABLETS) IN THE MORNING AND 75 MG AT 3PM AND 75 MG AT 9:30PM]
  7. LYRICA [Suspect]
     Active Substance: PREGABALIN
     Indication: NEURALGIA
     Dosage: 75 MG, THREE TIMES A DAY
     Route: 048
  8. CRESTOR [Concomitant]
     Active Substance: ROSUVASTATIN CALCIUM
     Indication: BLOOD CHOLESTEROL INCREASED
     Dosage: 10 MG, UNK
     Route: 048
  9. LYRICA [Suspect]
     Active Substance: PREGABALIN
     Indication: PAIN IN EXTREMITY
     Dosage: 250 MG, DAILY (100 MG IN THE MORNING AND 75 MG AT 3PM AND 75 MG AT 9:30PM)
     Route: 048
  10. REVATIO [Concomitant]
     Active Substance: SILDENAFIL CITRATE
     Indication: PULMONARY HYPERTENSION
     Dosage: 20 MG, THREE TIMES A DAY (STARTED TAKING IT 6-7 YEARS AGO)
     Route: 048
  11. TYLENOL [Concomitant]
     Active Substance: ACETAMINOPHEN
     Indication: PAIN
     Dosage: 650 MG, TWICE A DAY (ONE AT BEDTIME AND ONE IN THE MIDDLE OF THE NIGHT)
     Route: 048
  12. VITAMIN D [Concomitant]
     Active Substance: VITAMIN D NOS
     Indication: BONE DISORDER
     Dosage: 2000 IU, ONCE A DAY
     Route: 048
     Dates: start: 1993
  13. ESTER-C [Concomitant]
     Indication: IMMUNE SYSTEM DISORDER
     Dosage: 1000 MG, ONCE A DAY
     Route: 048
     Dates: start: 1993
  14. DEXILANT [Concomitant]
     Active Substance: DEXLANSOPRAZOLE
     Indication: GASTROOESOPHAGEAL REFLUX DISEASE
     Dosage: 60 MG, ONCE A DAY
     Route: 048
  15. FORTEO [Concomitant]
     Active Substance: TERIPARATIDE
     Indication: BONE DISORDER
     Dosage: 20 UG, ONCE DAILY AT NIGHT
     Dates: start: 2005
  16. LYRICA [Suspect]
     Active Substance: PREGABALIN
     Indication: BURNING SENSATION
     Dosage: 100 MG, TWICE A DAY (IN THE MORNING AND EVENING)
     Route: 048
     Dates: start: 2015
  17. FISH OIL [Suspect]
     Active Substance: FISH OIL
     Indication: CARDIAC DISORDER
     Dosage: 1400 MG, ONCE A DAY
     Route: 048
     Dates: start: 2014
  18. ASPIRIN [ACETYLSALICYLIC ACID] [Concomitant]
     Active Substance: ASPIRIN
     Indication: CARDIAC DISORDER
     Dosage: 81 MG, UNK
     Route: 048
     Dates: start: 2012

REACTIONS (10)
  - Therapeutic product effect incomplete [Not Recovered/Not Resolved]
  - Intentional product use issue [Unknown]
  - Eructation [Unknown]
  - Memory impairment [Unknown]
  - Spinal disorder [Unknown]
  - Body height decreased [Unknown]
  - Feeling abnormal [Not Recovered/Not Resolved]
  - Oedema [Unknown]
  - Asthenia [Unknown]
  - Cognitive disorder [Unknown]

NARRATIVE: CASE EVENT DATE: 2015
